FAERS Safety Report 9206796 (Version 2)
Quarter: 2013Q2

REPORT INFORMATION
  Report Type: Report from Study
  Country: US (occurrence: US)
  Receive Date: 20130403
  Receipt Date: 20130416
  Transmission Date: 20140414
  Serious: Yes (Other)
  Sender: FDA-Public Use
  Company Number: US-VERTEX PHARMACEUTICALS INC.-2013-004377

PATIENT
  Age: 58 Year
  Sex: Male
  Weight: 82 kg

DRUGS (18)
  1. VX-950 (TELAPREVIR) [Suspect]
     Indication: HEPATITIS C
     Dosage: 750 MG, TID
     Route: 048
  2. RIBASPHERE [Suspect]
     Indication: HEPATITIS C
  3. PEGINTERFERON [Suspect]
     Indication: HEPATITIS C
     Dosage: 180 ?G, QW
     Route: 058
  4. PROTONIX [Concomitant]
     Dosage: 20 MG, UNK
  5. LASIX [Concomitant]
     Dosage: 20 MG, UNK
  6. LANTUS [Concomitant]
  7. METFORMIN [Concomitant]
     Dosage: 500 MG, UNK
  8. LISINOPRIL [Concomitant]
     Dosage: 2.5 MG, UNK
  9. CARVEDILOL [Concomitant]
     Dosage: 25 MG, UNK
  10. VITAMIN E [Concomitant]
  11. MAGNESIUM OXIDE [Concomitant]
     Dosage: 400 MG, UNK
  12. VITAMIN C [Concomitant]
  13. POTASSIUM [Concomitant]
     Dosage: 75 MG, UNK
  14. WARFARIN [Concomitant]
     Dosage: 3 MG, UNK
  15. NOVOLOG [Concomitant]
  16. GLIPIZIDE ER [Concomitant]
     Dosage: 5 MG, UNK
  17. VITAMIN D [Concomitant]
     Dosage: 400 UT, UNK
  18. FERROUS SULFATE [Concomitant]
     Dosage: 325 MG, UNK

REACTIONS (2)
  - Haemoglobin decreased [Unknown]
  - Back pain [Unknown]
